FAERS Safety Report 8370739-4 (Version None)
Quarter: 2012Q2

REPORT INFORMATION
  Report Type: 
  Country: None (occurrence: None)
  Receive Date: 20120518
  Receipt Date: 20120510
  Transmission Date: 20120825
  Serious: Yes (Death, Life-Threatening, Hospitalization, Other)
  Sender: FDA-Public Use
  Company Number: US-CELGENEUS-163-21880-12023198

PATIENT
  Sex: Male

DRUGS (12)
  1. REVLIMID [Suspect]
     Dosage: 5 MILLIGRAM
     Route: 048
     Dates: start: 20120301, end: 20120322
  2. ARANESP [Concomitant]
     Route: 065
  3. NEULASTA [Concomitant]
     Route: 065
  4. CIPROFLOXACIN [Concomitant]
     Route: 065
  5. REVLIMID [Suspect]
     Dosage: 10-15MG
     Route: 048
     Dates: start: 20080901
  6. PERIDEX [Concomitant]
     Indication: ORAL INFECTION
     Route: 065
  7. REVLIMID [Suspect]
     Indication: MULTIPLE MYELOMA
     Dosage: 5 MILLIGRAM
     Route: 048
     Dates: start: 20080601, end: 20080101
  8. REVLIMID [Suspect]
     Dosage: 10 MILLIGRAM
     Route: 048
     Dates: start: 20100726, end: 20110401
  9. TYLENOL (CAPLET) [Concomitant]
     Route: 065
  10. REVLIMID [Suspect]
     Dosage: 10 MILLIGRAM
     Route: 048
     Dates: start: 20111031, end: 20111229
  11. ASPIRIN [Concomitant]
     Dosage: DECREASED
     Route: 065
  12. LYRICA [Concomitant]
     Route: 065

REACTIONS (4)
  - ACUTE LEUKAEMIA [None]
  - FEBRILE NEUTROPENIA [None]
  - NO THERAPEUTIC RESPONSE [None]
  - MULTIPLE MYELOMA [None]
